FAERS Safety Report 6679905-7 (Version None)
Quarter: 2010Q2

REPORT INFORMATION
  Report Type: 
  Country: None (occurrence: None)
  Receive Date: 20100409
  Receipt Date: 20100325
  Transmission Date: 20101027
  Serious: Yes (Other)
  Sender: FDA-Public Use
  Company Number: US-1181038

PATIENT
  Sex: Female

DRUGS (4)
  1. BSS [Suspect]
     Indication: CATARACT OPERATION
     Dosage: (INTRAOCULAR)
     Route: 031
     Dates: start: 20100222, end: 20100222
  2. BETADINE [Suspect]
     Indication: CATARACT OPERATION
     Dosage: (OPHTHALMIC)
     Route: 047
     Dates: start: 20100122, end: 20100122
  3. DUOVISC [Concomitant]
  4. EPINEPHRINE [Concomitant]

REACTIONS (1)
  - ENDOPHTHALMITIS [None]
